FAERS Safety Report 6409454-2 (Version None)
Quarter: 2009Q4

REPORT INFORMATION
  Report Type: 
  Country: None (occurrence: None)
  Receive Date: 20091019
  Receipt Date: 20091005
  Transmission Date: 20100525
  Serious: Yes (Other)
  Sender: FDA-Public Use
  Company Number: 1-20268191

PATIENT
  Sex: Female
  Weight: 68.4932 kg

DRUGS (3)
  1. LAMOTRIGINE [Suspect]
     Indication: COMPLEX PARTIAL SEIZURES
     Dosage: 300 MG, TWICE DAILY, ORAL
     Route: 048
     Dates: start: 20090827, end: 20090901
  2. SYNTHROID [Concomitant]
  3. INSULIN PUMP [Concomitant]

REACTIONS (21)
  - ABASIA [None]
  - ASTHENIA [None]
  - AURA [None]
  - BALANCE DISORDER [None]
  - BLOOD GLUCOSE INCREASED [None]
  - BRADYPHRENIA [None]
  - CONVULSION [None]
  - DIZZINESS [None]
  - FATIGUE [None]
  - FEELING ABNORMAL [None]
  - FLATULENCE [None]
  - HEART RATE INCREASED [None]
  - IMPAIRED WORK ABILITY [None]
  - NAUSEA [None]
  - PAIN [None]
  - PALLOR [None]
  - PRODUCT SUBSTITUTION ISSUE [None]
  - SCREAMING [None]
  - SPEECH DISORDER [None]
  - VERTIGO [None]
  - VISUAL IMPAIRMENT [None]
